FAERS Safety Report 7248910-4 (Version None)
Quarter: 2011Q1

REPORT INFORMATION
  Report Type: 
  Country: None (occurrence: None)
  Receive Date: 20110128
  Receipt Date: 20100706
  Transmission Date: 20110831
  Serious: Yes (Hospitalization, Other)
  Sender: FDA-Public Use
  Company Number: US-BAYER-200942455NA

PATIENT
  Sex: Female
  Weight: 49 kg

DRUGS (8)
  1. TRAZODONE [Concomitant]
     Dosage: 50 MG, HS
     Dates: start: 20071114
  2. FLEXERIL [Concomitant]
     Dates: start: 20070910
  3. YAZ [Suspect]
     Indication: PREMENSTRUAL SYNDROME
     Route: 048
     Dates: start: 20071020, end: 20071119
  4. YAZ [Suspect]
     Indication: ACNE
  5. YAZ [Suspect]
  6. LEXAPRO [Concomitant]
     Dosage: 10 MG, QD
  7. FLONASE [Concomitant]
     Dates: start: 20070901
  8. ZYRTEC [Concomitant]
     Dosage: 5 MG, QD
     Dates: start: 20070926, end: 20071215

REACTIONS (4)
  - OEDEMA PERIPHERAL [None]
  - PAIN IN EXTREMITY [None]
  - DEEP VEIN THROMBOSIS [None]
  - VARICOSE VEIN [None]
